FAERS Safety Report 15183010 (Version 1)
Quarter: 2018Q3

REPORT INFORMATION
  Report Type: Spontaneous
  Country: US (occurrence: US)
  Receive Date: 20180625
  Receipt Date: 20180625
  Transmission Date: 20181010
  Serious: No
  Sender: FDA-Public Use
  Company Number: None

PATIENT
  Age: 49 Year
  Sex: Male

DRUGS (1)
  1. LAMIVUDINE 150MG/ZIDOVUDINE 500MG TABLET [Suspect]
     Active Substance: LAMIVUDINE\ZIDOVUDINE
     Dates: start: 20170625, end: 20180625

REACTIONS (1)
  - Lipids increased [None]

NARRATIVE: CASE EVENT DATE: 20170625
